FAERS Safety Report 5105942-X (Version None)
Quarter: 2006Q3

REPORT INFORMATION
  Report Type: 
  Country: None (occurrence: None)
  Receive Date: 20060912
  Receipt Date: 20060911
  Transmission Date: 20061208
  Serious: Yes (Other)
  Sender: FDA-Public Use
  Company Number: 2006S1006329

PATIENT
  Age: 41 Year
  Sex: Female
  Weight: 57.1532 kg

DRUGS (4)
  1. FENTANYL TRANSDERMAL SYSTEM [Suspect]
     Indication: BACK PAIN
     Dosage: 50 UG/HR; TDER
     Route: 062
     Dates: start: 20060603, end: 20060801
  2. ACETAMINOPHEN AND HYDROCODONE BITARTRATE [Concomitant]
  3. METHOCARBAMOL [Concomitant]
  4. GABAPENTIN [Concomitant]

REACTIONS (8)
  - ABDOMINAL PAIN [None]
  - BURNING SENSATION [None]
  - DRUG WITHDRAWAL SYNDROME [None]
  - INAPPROPRIATE SCHEDULE OF DRUG ADMINISTRATION [None]
  - INTERVERTEBRAL DISC PROTRUSION [None]
  - NERVE COMPRESSION [None]
  - PRURITUS GENERALISED [None]
  - WEIGHT DECREASED [None]
